FAERS Safety Report 25112850 (Version 1)
Quarter: 2025Q1

REPORT INFORMATION
  Report Type: Spontaneous
  Country: IT (occurrence: IT)
  Receive Date: 20250324
  Receipt Date: 20250324
  Transmission Date: 20250409
  Serious: Yes (Hospitalization)
  Sender: GILEAD
  Company Number: IT-GILEAD-2025-0707788

PATIENT
  Age: 36 Year
  Sex: Female

DRUGS (2)
  1. VEKLURY [Suspect]
     Active Substance: REMDESIVIR
     Indication: COVID-19
     Route: 042
  2. OCRELIZUMAB [Concomitant]
     Active Substance: OCRELIZUMAB

REACTIONS (1)
  - COVID-19 [Unknown]
